FAERS Safety Report 9909151 (Version 2)
Quarter: 2014Q1

REPORT INFORMATION
  Report Type: Spontaneous
  Country: US (occurrence: US)
  Receive Date: 20140219
  Receipt Date: 20140219
  Transmission Date: 20141002
  Serious: Yes (Hospitalization, Other)
  Sender: FDA-Public Use
  Company Number: US-PURDUE-USA-2013-0109471

PATIENT
  Age: 90 Year
  Sex: Female
  Weight: 66.32 kg

DRUGS (4)
  1. BUTRANS [Suspect]
     Indication: OSTEOARTHRITIS
     Dosage: 5 MCG/HR, WEEKLY
     Route: 062
     Dates: start: 20130913, end: 20131002
  2. ARICEPT [Concomitant]
     Indication: DEMENTIA
     Dosage: 10 MG, DAILY
     Route: 048
     Dates: start: 20130417
  3. LEVOTHYROXINE [Concomitant]
     Indication: HYPOTHYROIDISM
     Dosage: 50 MCG, UNK
     Dates: start: 20120913
  4. NAMENDA [Concomitant]
     Indication: DEMENTIA
     Dosage: 10 MG, BID
     Route: 048
     Dates: start: 20130922

REACTIONS (4)
  - Cerebral atrophy [Unknown]
  - Dementia [Unknown]
  - Depression [Unknown]
  - Confusional state [Recovered/Resolved]
